FAERS Safety Report 9523495 (Version 3)
Quarter: 2014Q2

REPORT INFORMATION
  Report Type: Spontaneous
  Country: US (occurrence: US)
  Receive Date: 20130913
  Receipt Date: 20140523
  Transmission Date: 20141212
  Serious: Yes (Other)
  Sender: FDA-Public Use
  Company Number: US-GLAXOSMITHKLINE-A1041406A

PATIENT
  Age: 68 Year
  Sex: Female

DRUGS (1)
  1. ADVAIR [Suspect]
     Indication: CHRONIC OBSTRUCTIVE PULMONARY DISEASE
     Route: 055
     Dates: start: 20090210

REACTIONS (6)
  - Candida infection [Unknown]
  - Candida infection [Unknown]
  - Candida infection [Unknown]
  - Pneumonia [Unknown]
  - Malaise [Unknown]
  - Pharyngitis streptococcal [Unknown]
